FAERS Safety Report 7226799-7 (Version None)
Quarter: 2011Q1

REPORT INFORMATION
  Report Type: 
  Country: None (occurrence: None)
  Receive Date: 20110105
  Receipt Date: 20101220
  Transmission Date: 20110831
  Serious: Yes (Hospitalization, Other)
  Sender: FDA-Public Use
  Company Number: JHP201000379

PATIENT
  Age: 19 Year
  Sex: Female

DRUGS (1)
  1. KETALAR [Suspect]
     Indication: DRUG ABUSE
     Dosage: DAILY X 3 YEARS

REACTIONS (13)
  - SUPRAPUBIC PAIN [None]
  - BLADDER SPHINCTER ATONY [None]
  - MAJOR DEPRESSION [None]
  - NOCTURIA [None]
  - REDUCED BLADDER CAPACITY [None]
  - BLADDER DISORDER [None]
  - REFUSAL OF TREATMENT BY PATIENT [None]
  - HAEMATURIA [None]
  - SUICIDAL IDEATION [None]
  - URGE INCONTINENCE [None]
  - DRUG DEPENDENCE [None]
  - POLLAKIURIA [None]
  - MICTURITION URGENCY [None]
